FAERS Safety Report 9594769 (Version 1)
Quarter: 2013Q4

REPORT INFORMATION
  Report Type: Spontaneous
  Country: US (occurrence: None)
  Receive Date: 20131001
  Receipt Date: 20131001
  Transmission Date: 20140711
  Serious: Yes (Other)
  Sender: FDA-Public Use
  Company Number: 2013BAX020183

PATIENT
  Age: 52 Year
  Sex: Female
  Weight: 68.18 kg

DRUGS (2)
  1. GAMMAGARD S/D [Suspect]
     Indication: IMMUNODEFICIENCY COMMON VARIABLE
     Dosage: 40 GM, 1 IN 3 WK), UNKNOWN
     Dates: start: 1999
  2. MULTIVITAMINS [Concomitant]

REACTIONS (1)
  - Meningitis aseptic [None]
